FAERS Safety Report 9028739 (Version 1)
Quarter: 2013Q1

REPORT INFORMATION
  Report Type: Spontaneous
  Country: US (occurrence: US)
  Receive Date: 20130124
  Receipt Date: 20130124
  Transmission Date: 20140127
  Serious: Yes (Other)
  Sender: FDA-Public Use
  Company Number: US-PFIZER INC-2013027721

PATIENT
  Age: 61 Year
  Sex: Male
  Weight: 68.48 kg

DRUGS (7)
  1. LYRICA [Suspect]
     Indication: NEURALGIA
     Dosage: 50 MG, 3X/DAY
     Route: 048
     Dates: start: 201203, end: 2012
  2. LYRICA [Suspect]
     Dosage: 75 MG, 3X/DAY
     Route: 048
     Dates: start: 201205, end: 201206
  3. NEURONTIN [Suspect]
     Dosage: UNK
     Dates: start: 2012, end: 2012
  4. ATENOLOL [Concomitant]
     Indication: HYPERTENSION
     Dosage: 100 MG, UNK
  5. NORVASC [Concomitant]
     Indication: HYPERTENSION
     Dosage: 10 MG, UNK
  6. VITAMIN B12 [Concomitant]
     Indication: VITAMIN SUPPLEMENTATION
     Dosage: UNK, 2X/WEEK
  7. VITAMIN D [Concomitant]
     Indication: VITAMIN SUPPLEMENTATION
     Dosage: 6000 IU, UNK

REACTIONS (18)
  - Spinal fracture [Unknown]
  - Intervertebral disc disorder [Unknown]
  - Musculoskeletal disorder [Unknown]
  - Limb discomfort [Unknown]
  - Euphoric mood [Unknown]
  - Hypoaesthesia [Unknown]
  - Hypoaesthesia [Unknown]
  - Hypokinesia [Unknown]
  - Gait disturbance [Unknown]
  - Myalgia [Unknown]
  - Walking aid user [Unknown]
  - Blood pressure increased [Unknown]
  - Vitamin D deficiency [Unknown]
  - Asthenia [Unknown]
  - Feeling abnormal [Unknown]
  - Vitamin B12 deficiency [Unknown]
  - Vitamin D decreased [Unknown]
  - Drug ineffective [Unknown]
